FAERS Safety Report 26026893 (Version 2)
Quarter: 2025Q4

REPORT INFORMATION
  Report Type: Spontaneous
  Country: EU (occurrence: EU)
  Receive Date: 20251111
  Receipt Date: 20251202
  Transmission Date: 20260118
  Serious: Yes (Congenital Anomaly, Other)
  Sender: SANOFI AVENTIS
  Company Number: None

PATIENT
  Age: 14 Week
  Sex: Male

DRUGS (4)
  1. TAXOTERE [Suspect]
     Active Substance: DOCETAXEL
     Indication: Product used for unknown indication
     Dosage: 1 MG/M2, Q3W
     Route: 064
  2. TAXOTERE [Suspect]
     Active Substance: DOCETAXEL
     Indication: Breast cancer
     Dosage: 75 MG/M2, Q3W
     Route: 064
  3. HERCEPTIN [Suspect]
     Active Substance: TRASTUZUMAB
     Dosage: 4 MG/KG, QW
     Route: 064
  4. CARBOPLATIN [Suspect]
     Active Substance: CARBOPLATIN
     Indication: Breast cancer
     Dosage: UNK UNK, Q3W, AUC 6 EVERY 3 WEEKS
     Route: 064

REACTIONS (7)
  - Foetal growth restriction [Not Recovered/Not Resolved]
  - Foetal exposure during pregnancy [Not Recovered/Not Resolved]
  - Low birth weight baby [Unknown]
  - Growth retardation [Unknown]
  - Premature baby [Recovered/Resolved]
  - Renal failure [Recovered/Resolved]
  - Oligohydramnios [Unknown]
